FAERS Safety Report 5699143-4 (Version None)
Quarter: 2008Q2

REPORT INFORMATION
  Report Type: 
  Country: None (occurrence: None)
  Receive Date: 20080409
  Receipt Date: 20080409
  Transmission Date: 20081010
  Serious: Yes (Death)
  Sender: FDA-Public Use
  Company Number: None

PATIENT
  Age: 62 Year
  Sex: Male
  Weight: 90.7194 kg

DRUGS (1)
  1. HEPARIN [Suspect]
     Dates: start: 20071227, end: 20080107

REACTIONS (1)
  - GENERAL PHYSICAL HEALTH DETERIORATION [None]
